FAERS Safety Report 22381420 (Version 1)
Quarter: 2023Q2

REPORT INFORMATION
  Report Type: Spontaneous
  Country: LV (occurrence: LV)
  Receive Date: 20230530
  Receipt Date: 20230530
  Transmission Date: 20230721
  Serious: Yes (Hospitalization)
  Sender: FDA-Public Use
  Company Number: LV-JUBILANT PHARMA LTD-2023LV000453

PATIENT
  Sex: Male

DRUGS (30)
  1. OLANZAPINE [Suspect]
     Active Substance: OLANZAPINE
     Indication: Schizophrenia
     Dosage: 10 MG
     Dates: start: 202104
  2. OLANZAPINE [Suspect]
     Active Substance: OLANZAPINE
     Dosage: 20 MG/DAY
     Dates: start: 202104
  3. OLANZAPINE [Suspect]
     Active Substance: OLANZAPINE
     Dosage: 20 MG/ DAY
     Dates: start: 202105
  4. OLANZAPINE [Suspect]
     Active Substance: OLANZAPINE
     Dosage: 20 MG/ DAY
     Dates: start: 202105
  5. OLANZAPINE [Suspect]
     Active Substance: OLANZAPINE
     Dosage: 20 MG/DAY
     Dates: start: 202106
  6. OLANZAPINE [Suspect]
     Active Substance: OLANZAPINE
     Dosage: 20 MG/DAY
     Dates: start: 202107
  7. OLANZAPINE [Suspect]
     Active Substance: OLANZAPINE
     Dosage: 20 MG/DAY
     Dates: start: 202109
  8. OLANZAPINE [Suspect]
     Active Substance: OLANZAPINE
     Dosage: 20 MG/DAY
     Dates: start: 202110
  9. OLANZAPINE [Suspect]
     Active Substance: OLANZAPINE
     Dosage: 20 MG/DAY
     Dates: start: 202111
  10. OLANZAPINE [Suspect]
     Active Substance: OLANZAPINE
     Dosage: 20 MG/DAY
     Dates: start: 202112
  11. OLANZAPINE [Suspect]
     Active Substance: OLANZAPINE
     Dosage: 10 MG/DAY
     Dates: start: 202201
  12. OLANZAPINE [Suspect]
     Active Substance: OLANZAPINE
     Dosage: 10 MG/DAY
     Dates: start: 202202
  13. QUETIAPINE FUMARATE [Suspect]
     Active Substance: QUETIAPINE FUMARATE
     Indication: Schizophrenia
     Dosage: 50 MG/DAY
     Dates: start: 202104
  14. QUETIAPINE FUMARATE [Suspect]
     Active Substance: QUETIAPINE FUMARATE
     Dosage: 50 MG/DAY
     Dates: start: 202107
  15. RISPERIDONE [Suspect]
     Active Substance: RISPERIDONE
     Indication: Schizophrenia
     Dosage: 4 MG/DAY
     Dates: start: 202103
  16. RISPERIDONE [Suspect]
     Active Substance: RISPERIDONE
     Dosage: 6 MG/DAY
     Dates: start: 202106
  17. RISPERIDONE [Suspect]
     Active Substance: RISPERIDONE
     Dosage: 6 MG/DAY
     Dates: start: 202106
  18. RISPERIDONE [Suspect]
     Active Substance: RISPERIDONE
     Dosage: 6 MG/DAY
     Dates: start: 202107
  19. RISPERIDONE [Suspect]
     Active Substance: RISPERIDONE
     Dosage: 6 MG/DAY
     Dates: start: 202109
  20. RISPERIDONE [Suspect]
     Active Substance: RISPERIDONE
     Dosage: 6 MG/DAY
     Dates: start: 202110
  21. HALOPERIDOL [Suspect]
     Active Substance: HALOPERIDOL
     Indication: Schizophrenia
     Dosage: 15 MG/ DAY
     Dates: start: 202104
  22. HALOPERIDOL [Suspect]
     Active Substance: HALOPERIDOL
     Dosage: 15 MG/DAY
     Dates: start: 202104
  23. HALOPERIDOL [Suspect]
     Active Substance: HALOPERIDOL
     Dosage: 7.5 MG/DAY
     Dates: start: 202104
  24. HALOPERIDOL [Suspect]
     Active Substance: HALOPERIDOL
     Dosage: 15 MG/DAY
     Dates: start: 202105
  25. HALOPERIDOL [Suspect]
     Active Substance: HALOPERIDOL
     Dosage: 7.5 MG/DAY
     Dates: start: 202105
  26. ARIPIPRAZOLE [Suspect]
     Active Substance: ARIPIPRAZOLE
     Indication: Schizophrenia
     Dosage: 15 MG
     Dates: start: 202105
  27. BUSPIRONE [Suspect]
     Active Substance: BUSPIRONE HYDROCHLORIDE
     Indication: Schizophrenia
     Dosage: 30 MG/DAY
     Dates: start: 202109
  28. BUSPIRONE [Suspect]
     Active Substance: BUSPIRONE HYDROCHLORIDE
     Dosage: 30 MG/DAY
     Dates: start: 202110
  29. BUSPIRONE [Suspect]
     Active Substance: BUSPIRONE HYDROCHLORIDE
     Dosage: 30 MG/DAY
     Dates: start: 202111
  30. BUSPIRONE [Suspect]
     Active Substance: BUSPIRONE HYDROCHLORIDE
     Dosage: DOWN TITRATION
     Dates: start: 202112

REACTIONS (2)
  - Parkinsonism [Recovering/Resolving]
  - Treatment noncompliance [Recovering/Resolving]
